FAERS Safety Report 9839871 (Version 1)
Quarter: 2014Q1

REPORT INFORMATION
  Report Type: Report from Study
  Country: DK (occurrence: DK)
  Receive Date: 20140124
  Receipt Date: 20140124
  Transmission Date: 20141002
  Serious: Yes (Other)
  Sender: FDA-Public Use
  Company Number: CHNY2014DK000499

PATIENT
  Sex: Male

DRUGS (1)
  1. NICOTINELL GUM [Suspect]
     Route: 065

REACTIONS (1)
  - Drug dependence [Unknown]
